FAERS Safety Report 15920928 (Version 1)
Quarter: 2019Q1

REPORT INFORMATION
  Report Type: Spontaneous
  Country: US (occurrence: US)
  Receive Date: 20190205
  Receipt Date: 20190205
  Transmission Date: 20190417
  Serious: Yes (Hospitalization)
  Sender: FDA-Public Use
  Company Number: PHHY2019US020839

PATIENT
  Age: 41 Year
  Sex: Female

DRUGS (2)
  1. ACETAMINOPHEN. [Concomitant]
     Active Substance: ACETAMINOPHEN
     Indication: ILL-DEFINED DISORDER
     Route: 065
  2. FLUOXETINE [Suspect]
     Active Substance: FLUOXETINE HYDROCHLORIDE
     Indication: DEPRESSION
     Dosage: 20 MG, QD
     Route: 048

REACTIONS (9)
  - Mouth haemorrhage [Recovering/Resolving]
  - Nikolsky^s sign [Unknown]
  - Rash morbilliform [Recovering/Resolving]
  - Liver tenderness [Unknown]
  - Stevens-Johnson syndrome [Unknown]
  - Mouth ulceration [Recovering/Resolving]
  - Drug-induced liver injury [Unknown]
  - Ocular icterus [Unknown]
  - Steatohepatitis [Unknown]
